FAERS Safety Report 24135533 (Version 1)
Quarter: 2024Q3

REPORT INFORMATION
  Report Type: Spontaneous
  Country: CN (occurrence: CN)
  Receive Date: 20240725
  Receipt Date: 20240725
  Transmission Date: 20241017
  Serious: Yes (Death)
  Sender: Teyro Labs
  Company Number: CN-TEYRO-2024-TY-000369

PATIENT

DRUGS (4)
  1. CARBOPLATIN [Suspect]
     Active Substance: CARBOPLATIN
     Indication: Small cell lung cancer extensive stage
     Dosage: AUC 5 MG/ML/MIN ON DAY 1  (THE  MAXIMUM DOSE WAS 750 MG)
     Route: 042
  2. BENMELSTOBART [Suspect]
     Active Substance: BENMELSTOBART
     Indication: Small cell lung cancer extensive stage
     Dosage: 1200 MG INTRAVENOUS TQB2450 ON DAY 1
     Route: 042
  3. CATEQUENTINIB [Suspect]
     Active Substance: CATEQUENTINIB
     Indication: Small cell lung cancer extensive stage
     Dosage: 12 MG ORAL ANLOTINIB  ONCE DAILY ON DAYS 1-14
     Route: 048
  4. ETOPOSIDE [Suspect]
     Active Substance: ETOPOSIDE
     Indication: Small cell lung cancer extensive stage
     Dosage: 100 MG/M2 INTRAVENOUS ETOPOSIDE ON DAYS 1-3
     Route: 042

REACTIONS (2)
  - Haemoptysis [Fatal]
  - Off label use [Unknown]
